FAERS Safety Report 25652640 (Version 1)
Quarter: 2025Q3

REPORT INFORMATION
  Report Type: Spontaneous
  Country: US (occurrence: US)
  Receive Date: 20250807
  Receipt Date: 20250807
  Transmission Date: 20251021
  Serious: Yes (Life-Threatening, Hospitalization, Other)
  Sender: SANDOZ
  Company Number: US-SANDOZ-SDZ2025US056248

PATIENT
  Age: 10 Year
  Sex: Female

DRUGS (3)
  1. GEMCITABINE [Suspect]
     Active Substance: GEMCITABINE
     Indication: Germ cell cancer
     Route: 065
  2. OXALIPLATIN [Suspect]
     Active Substance: OXALIPLATIN
     Indication: Germ cell cancer
     Route: 065
  3. PACLITAXEL [Suspect]
     Active Substance: PACLITAXEL
     Indication: Germ cell cancer
     Route: 065

REACTIONS (6)
  - Venoocclusive disease [Unknown]
  - Acute respiratory distress syndrome [Recovered/Resolved]
  - Pneumonia staphylococcal [Unknown]
  - Bronchopulmonary aspergillosis [Unknown]
  - Urosepsis [Unknown]
  - Product use in unapproved indication [Unknown]
